FAERS Safety Report 8256537-0 (Version None)
Quarter: 2012Q1

REPORT INFORMATION
  Report Type: 
  Country: None (occurrence: None)
  Receive Date: 20120330
  Receipt Date: 20120323
  Transmission Date: 20120608
  Serious: Yes (Hospitalization)
  Sender: FDA-Public Use
  Company Number: 2012SP016147

PATIENT
  Age: 23 Year
  Sex: Female

DRUGS (1)
  1. REMERON [Suspect]
     Indication: PRODUCT USED FOR UNKNOWN INDICATION
     Dosage: 20 DF; ONCE;PO
     Route: 048
     Dates: start: 20120305, end: 20120305

REACTIONS (6)
  - COMA [None]
  - SUICIDE ATTEMPT [None]
  - METABOLIC ACIDOSIS [None]
  - BLOOD CREATINE PHOSPHOKINASE INCREASED [None]
  - INTENTIONAL OVERDOSE [None]
  - EPILEPSY [None]
